FAERS Safety Report 14644636 (Version 3)
Quarter: 2019Q1

REPORT INFORMATION
  Report Type: Report from Study
  Country: US (occurrence: US)
  Receive Date: 20180315
  Receipt Date: 20190315
  Transmission Date: 20190417
  Serious: Yes (Hospitalization, Other)
  Sender: FDA-Public Use
  Company Number: PHEH2018US008653

PATIENT
  Age: 54 Year
  Sex: Female

DRUGS (1)
  1. COSENTYX [Suspect]
     Active Substance: SECUKINUMAB
     Indication: PRODUCT USED FOR UNKNOWN INDICATION
     Dosage: UNK
     Route: 065

REACTIONS (8)
  - Systemic lupus erythematosus [Unknown]
  - Arthritis [Unknown]
  - Insomnia [Unknown]
  - Alcoholism [Unknown]
  - Thyroid disorder [Unknown]
  - Photosensitivity reaction [Unknown]
  - Dry mouth [Unknown]
  - Malaise [Unknown]

NARRATIVE: CASE EVENT DATE: 20180220
